FAERS Safety Report 7968152-4 (Version None)
Quarter: 2011Q4

REPORT INFORMATION
  Report Type: 
  Country: None (occurrence: None)
  Receive Date: 20111209
  Receipt Date: 20111202
  Transmission Date: 20120403
  Serious: Yes (Hospitalization, Other)
  Sender: FDA-Public Use
  Company Number: PHHY2011FR106117

PATIENT
  Age: 58 Year
  Sex: Female

DRUGS (1)
  1. ONBREZ [Suspect]
     Indication: CHRONIC OBSTRUCTIVE PULMONARY DISEASE
     Dosage: 5L/MIN

REACTIONS (3)
  - DYSPNOEA [None]
  - VOMITING [None]
  - BRONCHOSPASM [None]
